FAERS Safety Report 10041264 (Version 1)
Quarter: 2014Q1

REPORT INFORMATION
  Report Type: Spontaneous
  Country: US (occurrence: None)
  Receive Date: 20140326
  Receipt Date: 20140326
  Transmission Date: 20141002
  Serious: Yes (Hospitalization)
  Sender: FDA-Public Use
  Company Number: None

PATIENT
  Age: 64 Year
  Sex: Female

DRUGS (9)
  1. GLEEVAC [Suspect]
     Route: 048
     Dates: start: 20131024
  2. ADVAIR [Concomitant]
  3. ASPIRIN [Concomitant]
  4. COMBIVENT [Concomitant]
  5. FUROSEMIDE [Concomitant]
  6. SYNTHROID [Concomitant]
  7. METROPOLOL [Concomitant]
  8. OMEPRAZOLE [Concomitant]
  9. VENTOLIN [Concomitant]

REACTIONS (1)
  - Investigation [None]
